FAERS Safety Report 5564206-0 (Version None)
Quarter: 2007Q4

REPORT INFORMATION
  Report Type: 
  Country: None (occurrence: None)
  Receive Date: 20071217
  Receipt Date: 20071212
  Transmission Date: 20080405
  Serious: Yes (Hospitalization)
  Sender: FDA-Public Use
  Company Number: DE-MERCK-0711DEU00117

PATIENT
  Age: 70 Year
  Sex: Male
  Weight: 95 kg

DRUGS (8)
  1. JANUVIA [Suspect]
     Indication: TYPE 2 DIABETES MELLITUS
     Route: 048
  2. HYDROCHLOROTHIAZIDE AND IRBESARTAN [Concomitant]
     Route: 048
  3. BISOPROLOL [Concomitant]
     Route: 048
  4. SIMVASTATIN [Concomitant]
     Route: 048
  5. ALLOPURINOL [Concomitant]
     Route: 048
  6. TAMSULOSIN HYDROCHLORIDE [Concomitant]
     Route: 065
  7. ETORICOXIB [Concomitant]
     Route: 048
  8. TRAMADOL HYDROCHLORIDE [Concomitant]
     Route: 065

REACTIONS (2)
  - HAEMATOMA [None]
  - SPINAL FUSION SURGERY [None]
